FAERS Safety Report 8418143-4 (Version None)
Quarter: 2012Q2

REPORT INFORMATION
  Report Type: 
  Country: None (occurrence: None)
  Receive Date: 20120604
  Receipt Date: 20120604
  Transmission Date: 20120825
  Serious: Yes (Other)
  Sender: FDA-Public Use
  Company Number: None

PATIENT
  Age: 41 Year
  Sex: Female
  Weight: 50.8029 kg

DRUGS (3)
  1. WELLBUTRIN [Concomitant]
  2. AMANTADINE HCL [Suspect]
     Indication: MULTIPLE SCLEROSIS
     Dosage: 100MG 2/DAY PO
     Route: 048
     Dates: start: 20120512, end: 20120530
  3. AMANTADINE HCL [Suspect]
     Indication: FATIGUE
     Dosage: 100MG 2/DAY PO
     Route: 048
     Dates: start: 20120512, end: 20120530

REACTIONS (4)
  - VISION BLURRED [None]
  - CORNEAL OEDEMA [None]
  - CORNEAL SCAR [None]
  - EYE PAIN [None]
